FAERS Safety Report 8430308-4 (Version None)
Quarter: 2012Q2

REPORT INFORMATION
  Report Type: 
  Country: None (occurrence: None)
  Receive Date: 20120323
  Receipt Date: 20111205
  Transmission Date: 20120825
  Serious: Yes (Hospitalization)
  Sender: FDA-Public Use
  Company Number: 163-21880-11083030

PATIENT
  Age: 53 Year
  Sex: Female
  Weight: 55.3388 kg

DRUGS (23)
  1. LOMOTIL [Concomitant]
  2. ZYRTEC [Concomitant]
  3. TRAMADOL HCL [Concomitant]
  4. VFEND [Concomitant]
  5. GUAIFENESIN [Concomitant]
  6. CLARITIN [Concomitant]
  7. FOLIC ACID [Concomitant]
  8. RESTORIL [Concomitant]
  9. CONTIN (MORPHINE SULFATE) [Concomitant]
  10. GABAPENTIN [Concomitant]
  11. CENTRUM [Concomitant]
  12. REVLIMID [Suspect]
     Indication: MULTIPLE MYELOMA
     Dosage: 25 MG, 1 IN 1 D, PO; 10 MG, QD X28 DAYS, PO
     Route: 048
     Dates: start: 20101201
  13. REVLIMID [Suspect]
     Indication: MULTIPLE MYELOMA
     Dosage: 25 MG, 1 IN 1 D, PO; 10 MG, QD X28 DAYS, PO
     Route: 048
     Dates: start: 20110801
  14. BACTRIM DS [Concomitant]
  15. CITRICAL (CALCIUM CITRATE) [Concomitant]
  16. PRILOSEC [Concomitant]
  17. ATIVAN [Concomitant]
  18. ZOFRAN [Concomitant]
  19. ALLEGRA [Concomitant]
  20. ZOVIRAX [Concomitant]
  21. CALCIUM [Concomitant]
  22. DECADRON [Concomitant]
  23. NUVARING [Concomitant]

REACTIONS (3)
  - DRY SKIN [None]
  - FUNGAL INFECTION [None]
  - PNEUMONIA [None]
